FAERS Safety Report 5721243-0 (Version None)
Quarter: 2008Q2

REPORT INFORMATION
  Report Type: 
  Country: None (occurrence: None)
  Receive Date: 20080424
  Receipt Date: 20080409
  Transmission Date: 20081010
  Serious: Yes (Hospitalization)
  Sender: FDA-Public Use
  Company Number: MEDI-0006731

PATIENT
  Age: 14 Month
  Sex: Female

DRUGS (5)
  1. SYNAGIS (PALIVIZUMAB) [Suspect]
     Indication: ANTIVIRAL PROPHYLAXIS
     Dosage: 100 MG
     Dates: start: 20071010, end: 20080226
  2. SYNAGIS (PALIVIZUMAB) [Suspect]
     Indication: ANTIVIRAL PROPHYLAXIS
     Dosage: 100 MG
     Dates: start: 20071010
  3. SYNAGIS (PALIVIZUMAB) [Suspect]
     Indication: ANTIVIRAL PROPHYLAXIS
     Dosage: 100 MG
     Dates: start: 20071219
  4. SYNAGIS (PALIVIZUMAB) [Suspect]
     Indication: ANTIVIRAL PROPHYLAXIS
     Dosage: 100 MG
     Dates: start: 20080118
  5. SYNAGIS (PALIVIZUMAB) [Suspect]
     Indication: ANTIVIRAL PROPHYLAXIS
     Dosage: 100 MG
     Dates: start: 20080331

REACTIONS (1)
  - RESPIRATORY SYNCYTIAL VIRUS BRONCHIOLITIS [None]
